FAERS Safety Report 25721353 (Version 1)
Quarter: 2025Q3

REPORT INFORMATION
  Report Type: Spontaneous
  Country: US (occurrence: None)
  Receive Date: 20250822
  Receipt Date: 20250822
  Transmission Date: 20251020
  Serious: Yes (Other)
  Sender: FDA-CTU
  Company Number: None

PATIENT
  Age: 50 Year
  Sex: Female

DRUGS (4)
  1. LYRICA [Suspect]
     Active Substance: PREGABALIN
     Indication: Nerve injury
     Dates: start: 20160201, end: 20170101
  2. METFORMIN [Concomitant]
     Active Substance: METFORMIN HYDROCHLORIDE
  3. BERBERINE [Concomitant]
     Active Substance: BERBERINE
  4. VITAMIN D3 [Concomitant]
     Active Substance: CHOLECALCIFEROL

REACTIONS (6)
  - Suicidal ideation [None]
  - Withdrawal syndrome [None]
  - Pain [None]
  - Tremor [None]
  - Loss of personal independence in daily activities [None]
  - Drug hypersensitivity [None]

NARRATIVE: CASE EVENT DATE: 20170101
